FAERS Safety Report 10356272 (Version 2)
Quarter: 2015Q4

REPORT INFORMATION
  Report Type: Report from Study
  Country: FR (occurrence: FR)
  Receive Date: 20140801
  Receipt Date: 20151116
  Transmission Date: 20160304
  Serious: Yes (Life-Threatening, Hospitalization, Disabling)
  Sender: FDA-Public Use
  Company Number: FR-ROCHE-1442297

PATIENT
  Sex: Female

DRUGS (23)
  1. CORTANCYL [Concomitant]
     Active Substance: PREDNISONE
     Route: 065
  2. RITUXIMAB [Concomitant]
     Active Substance: RITUXIMAB
     Indication: RHEUMATOID ARTHRITIS
  3. LEVOTHYROX [Concomitant]
     Active Substance: LEVOTHYROXINE
     Dosage: 1/2 DF
     Route: 065
  4. DIFFU K [Concomitant]
     Active Substance: POTASSIUM CHLORIDE
     Route: 065
  5. DOLIPRANE [Concomitant]
     Active Substance: ACETAMINOPHEN
     Dosage: 2 DOSES EVERY 6 HOURS IF PAINS
     Route: 065
  6. METHOTREXATE [Concomitant]
     Active Substance: METHOTREXATE
  7. INEXIUM [Concomitant]
     Active Substance: ESOMEPRAZOLE
     Route: 065
  8. MIANSERINE [Concomitant]
     Active Substance: MIANSERIN HYDROCHLORIDE
     Route: 065
  9. TOCILIZUMAB [Suspect]
     Active Substance: TOCILIZUMAB
     Dosage: DOSE= 8MG/KG
     Route: 042
     Dates: start: 20120507
  10. VOLTARENE [Concomitant]
     Active Substance: DICLOFENAC SODIUM
     Dosage: 1 APPLICATION DAILY
     Route: 065
  11. CALCIDOSE VITAMINE D [Concomitant]
     Active Substance: CALCIUM\CHOLECALCIFEROL
     Dosage: 2 DF DAILY
     Route: 065
  12. RISPERDAL [Concomitant]
     Active Substance: RISPERIDONE
     Dosage: 2 MG ONE FOURTH DOSE PER DAY
     Route: 065
  13. TOCILIZUMAB [Suspect]
     Active Substance: TOCILIZUMAB
     Indication: RHEUMATOID ARTHRITIS
     Dosage: 8 MG/KG
     Route: 042
     Dates: start: 20120328
  14. CORTANCYL [Concomitant]
     Active Substance: PREDNISONE
     Route: 065
  15. CORTANCYL [Concomitant]
     Active Substance: PREDNISONE
     Route: 065
  16. LEXOMIL [Concomitant]
     Active Substance: BROMAZEPAM
     Route: 065
  17. PROZAC [Concomitant]
     Active Substance: FLUOXETINE HYDROCHLORIDE
     Route: 065
  18. LEVOTHYROX [Concomitant]
     Active Substance: LEVOTHYROXINE
     Route: 065
  19. SERESTA [Concomitant]
     Active Substance: OXAZEPAM
     Route: 065
  20. PREVISCAN (FRANCE) [Concomitant]
     Active Substance: FLUINDIONE
     Dosage: THREE FOURTH DOSE PER DAY
     Route: 065
  21. DUPHALAC [Concomitant]
     Active Substance: LACTULOSE
     Route: 065
  22. ZOLPIDEM [Concomitant]
     Active Substance: ZOLPIDEM\ZOLPIDEM TARTRATE
     Route: 065
  23. MIANSERINE [Concomitant]
     Active Substance: MIANSERIN HYDROCHLORIDE
     Dosage: 1/2DF DAILY
     Route: 065

REACTIONS (18)
  - Fall [Unknown]
  - Pulmonary embolism [Recovered/Resolved]
  - Diverticulitis [Recovered/Resolved]
  - Back pain [Recovered/Resolved]
  - Fall [Recovered/Resolved with Sequelae]
  - Deep vein thrombosis [Recovered/Resolved with Sequelae]
  - Rheumatoid arthritis [Recovered/Resolved with Sequelae]
  - Sciatica [Unknown]
  - Arthralgia [Unknown]
  - VIIth nerve paralysis [Recovered/Resolved with Sequelae]
  - Hypertension [Unknown]
  - Pain in extremity [Unknown]
  - Pneumonia [Recovered/Resolved]
  - Meningorrhagia [Recovered/Resolved with Sequelae]
  - Confusional state [Recovered/Resolved with Sequelae]
  - Hypercalcaemia [Unknown]
  - Inflammation [Unknown]
  - Hemiparesis [Recovered/Resolved with Sequelae]

NARRATIVE: CASE EVENT DATE: 20120413
